FAERS Safety Report 4470801-2 (Version None)
Quarter: 2004Q4

REPORT INFORMATION
  Report Type: 
  Country: None (occurrence: None)
  Receive Date: 20041007
  Receipt Date: 20041007
  Transmission Date: 20050328
  Serious: No
  Sender: FDA-Public Use
  Company Number: None

PATIENT
  Age: 42 Year
  Sex: Female
  Weight: 68.0396 kg

DRUGS (1)
  1. VIOXX  10 OR 20MG? LOW DOSE  MERCK [Suspect]
     Indication: MYALGIA
     Dosage: ONCE DAILY   ORAL
     Route: 048
     Dates: start: 20000815, end: 20010815

REACTIONS (1)
  - DYSPNOEA [None]
